FAERS Safety Report 4341114-4 (Version None)
Quarter: 2004Q2

REPORT INFORMATION
  Report Type: 
  Country: None (occurrence: None)
  Receive Date: 20040413
  Receipt Date: 20040407
  Transmission Date: 20050107
  Serious: Yes (Life-Threatening, Hospitalization)
  Sender: FDA-Public Use
  Company Number: NSADSS2002015169

PATIENT
  Age: 56 Year
  Sex: Female

DRUGS (4)
  1. REMICADE [Suspect]
     Indication: RHEUMATOID ARTHRITIS
     Dosage: 150 MG, 1 IN 1 AS NECESSARY, INTRAVENOUS DRIP
     Route: 041
     Dates: start: 20020216, end: 20020216
  2. METHOTREXATE [Concomitant]
  3. CYCLOSPORINE [Concomitant]
  4. PREDNISONE [Concomitant]

REACTIONS (5)
  - COUGH [None]
  - HILAR LYMPHADENOPATHY [None]
  - HYPOPHONESIS [None]
  - PLEURAL EFFUSION [None]
  - TUBERCULOUS PLEURISY [None]
